FAERS Safety Report 5880016-9 (Version None)
Quarter: 2008Q3

REPORT INFORMATION
  Report Type: 
  Country: None (occurrence: None)
  Receive Date: 20080910
  Receipt Date: 20080910
  Transmission Date: 20090109
  Serious: Yes (Hospitalization, Other)
  Sender: FDA-Public Use
  Company Number: None

PATIENT
  Sex: Female
  Weight: 57.6068 kg

DRUGS (5)
  1. MEFLOQUINE [Suspect]
     Indication: MALARIA PROPHYLAXIS
     Dosage: 1 TABLET WEEKLY PO
     Route: 048
     Dates: start: 20080709, end: 20080814
  2. SEASONIQUE [Concomitant]
  3. AMBIEN CR [Concomitant]
  4. DRAMAMINE [Concomitant]
  5. MACROBID [Concomitant]

REACTIONS (18)
  - ABNORMAL BEHAVIOUR [None]
  - ANXIETY [None]
  - CONVULSION [None]
  - DELUSION [None]
  - DIZZINESS [None]
  - FEAR [None]
  - FEELING ABNORMAL [None]
  - FREQUENT BOWEL MOVEMENTS [None]
  - GASTROENTERITIS [None]
  - IMPAIRED WORK ABILITY [None]
  - MENTAL DISORDER [None]
  - NAUSEA [None]
  - NIGHTMARE [None]
  - PANIC ATTACK [None]
  - PYREXIA [None]
  - RETCHING [None]
  - SUICIDAL IDEATION [None]
  - VOMITING [None]
